FAERS Safety Report 9244536 (Version 1)
Quarter: 2013Q1

REPORT INFORMATION
  Report Type: Spontaneous
  Country: US (occurrence: None)
  Receive Date: 20121123
  Receipt Date: 20121123
  Transmission Date: 20140127
  Serious: No
  Sender: FDA-Public Use
  Company Number: 360924

PATIENT
  Sex: Male

DRUGS (2)
  1. VICTOZA [Suspect]
     Indication: DIABETES MELLITUS
     Route: 058
  2. LANTUS (INSULIN GLARGINE) [Concomitant]

REACTIONS (1)
  - Gastrooesophageal reflux disease [None]
